FAERS Safety Report 6130675-0 (Version None)
Quarter: 2009Q1

REPORT INFORMATION
  Report Type: 
  Country: None (occurrence: None)
  Receive Date: 20090323
  Receipt Date: 20090319
  Transmission Date: 20090719
  Serious: Yes (Death, Hospitalization)
  Sender: FDA-Public Use
  Company Number: 2009SP006106

PATIENT
  Age: 58 Year
  Sex: Female

DRUGS (4)
  1. PEG-INTRON [Suspect]
     Indication: DRUG USE FOR UNKNOWN INDICATION
     Dosage: 100 MCG; QW; SC
     Route: 058
     Dates: start: 20081216, end: 20090313
  2. METHYLPREDNISOLONE 4MG TAB [Concomitant]
  3. ACECLOFENAC [Concomitant]
  4. IRON [Concomitant]

REACTIONS (2)
  - FATIGUE [None]
  - INFECTION SUSCEPTIBILITY INCREASED [None]
